FAERS Safety Report 20706260 (Version 1)
Quarter: 2022Q2

REPORT INFORMATION
  Report Type: Spontaneous
  Country: US (occurrence: US)
  Receive Date: 20220413
  Receipt Date: 20220413
  Transmission Date: 20220720
  Serious: No
  Sender: FDA-Public Use
  Company Number: US-SCILEX PHARMACEUTICALS INC.-2021SCX00045

PATIENT
  Sex: Female

DRUGS (1)
  1. ZTLIDO [Suspect]
     Active Substance: LIDOCAINE
     Dosage: UNK
     Route: 061

REACTIONS (2)
  - Dermatitis contact [Unknown]
  - Product adhesion issue [Unknown]
